FAERS Safety Report 8766729 (Version 1)
Quarter: 2012Q4

REPORT INFORMATION
  Report Type: 
  Country: US (occurrence: US)
  Receive Date: 20120904
  Receipt Date: 20120904
  Transmission Date: 20130627
  Serious: Yes (Hospitalization, Other)
  Sender: FDA-Public Use
  Company Number: US-SANOFI-AVENTIS-2012SA060450

PATIENT
  Age: 61 Year
  Sex: Male
  Weight: 127 kg

DRUGS (12)
  1. PLAVIX [Suspect]
     Indication: STENT PLACEMENT
     Route: 048
     Dates: start: 200402, end: 201207
  2. METOLAZONE [Concomitant]
  3. LASIX [Concomitant]
  4. KLOR-CON [Concomitant]
  5. RANOLAZINE [Concomitant]
  6. ISOSORBIDE MN [Concomitant]
  7. AMLODIPINE BESILATE [Concomitant]
  8. WARFARIN [Concomitant]
  9. CRESTOR /NET/ [Concomitant]
  10. DOXAZOSIN MESILATE [Concomitant]
  11. RAMIPRIL [Concomitant]
  12. METOPROLOL [Concomitant]

REACTIONS (6)
  - Vascular graft [Unknown]
  - Catheterisation cardiac [Unknown]
  - Stent placement [Unknown]
  - Drug ineffective [Unknown]
  - Type 2 diabetes mellitus [Unknown]
  - Drug resistance [Unknown]
